FAERS Safety Report 7965532-8 (Version None)
Quarter: 2011Q4

REPORT INFORMATION
  Report Type: 
  Country: None (occurrence: None)
  Receive Date: 20111208
  Receipt Date: 20111124
  Transmission Date: 20120403
  Serious: Yes (Hospitalization)
  Sender: FDA-Public Use
  Company Number: CA-JNJFOC-20111203345

PATIENT
  Sex: Female
  Weight: 101 kg

DRUGS (4)
  1. THYROXIN [Concomitant]
  2. REMICADE [Suspect]
     Indication: CROHN'S DISEASE
  3. REMICADE [Suspect]
     Dosage: MAINTENANCE DOSE 17
  4. BIRTH CONTROL PILLS [Concomitant]

REACTIONS (1)
  - SINUS OPERATION [None]
